FAERS Safety Report 7346192-6 (Version None)
Quarter: 2011Q1

REPORT INFORMATION
  Report Type: 
  Country: None (occurrence: None)
  Receive Date: 20110228
  Receipt Date: 20110217
  Transmission Date: 20110831
  Serious: Yes (Death, Hospitalization)
  Sender: FDA-Public Use
  Company Number: 11-079

PATIENT
  Age: 87 Year
  Sex: Female

DRUGS (18)
  1. POTASSIUM CHLORIDE [Concomitant]
  2. TRIMETHOPRIM [Suspect]
     Indication: URINARY TRACT INFECTION
     Dosage: 200 MG (2X/D);
     Dates: start: 20100918
  3. LEVOTHYROXINE SODIUM [Concomitant]
  4. DIHYDROCODEINE BITARTRATE INJ [Concomitant]
  5. ZOPICLONE [Concomitant]
  6. FENTANYL [Concomitant]
  7. SODIUM BICARBONATE [Concomitant]
  8. IBUPROFEN [Suspect]
     Dosage: 600 MG (3X/D) ORAL
     Route: 048
     Dates: start: 20080101, end: 20100919
  9. OMEPRAZOLE [Concomitant]
  10. FUROSEMIDE [Concomitant]
  11. SODIUM CHLORIDE (MOVICOL) [Concomitant]
  12. PARACETAMOL [Concomitant]
  13. FRAGMIN [Suspect]
     Indication: DEEP VEIN THROMBOSIS
     Dosage: 5000-10000 IU/D; SUBCUTANEOUS
     Route: 058
     Dates: start: 20100807, end: 20100919
  14. FRAGMIN [Suspect]
     Indication: DEEP VEIN THROMBOSIS
     Dosage: 5000-10000 IU/D; SUBCUTANEOUS
     Route: 058
     Dates: start: 20101005
  15. WARFARIN [Suspect]
     Indication: DEEP VEIN THROMBOSIS
     Dosage: 3MG,
     Dates: start: 20100831, end: 20100919
  16. WARFARIN [Suspect]
     Indication: DEEP VEIN THROMBOSIS
     Dosage: 3MG,
     Dates: start: 20101005, end: 20101007
  17. WARFARIN [Suspect]
     Indication: DEEP VEIN THROMBOSIS
     Dosage: 3MG,
     Dates: start: 20100923, end: 20100929
  18. MACROGOL [Concomitant]

REACTIONS (14)
  - DYSPHAGIA [None]
  - LOWER RESPIRATORY TRACT INFECTION [None]
  - INJECTION SITE HAEMORRHAGE [None]
  - SUBCUTANEOUS HAEMATOMA [None]
  - INTERNATIONAL NORMALISED RATIO INCREASED [None]
  - GENERAL PHYSICAL HEALTH DETERIORATION [None]
  - ANTICOAGULATION DRUG LEVEL ABOVE THERAPEUTIC [None]
  - BLOOD PRESSURE DECREASED [None]
  - SOMNOLENCE [None]
  - MEDICATION ERROR [None]
  - PLATELET COUNT INCREASED [None]
  - URINARY TRACT INFECTION [None]
  - CONTUSION [None]
  - INTERNATIONAL NORMALISED RATIO DECREASED [None]
